FAERS Safety Report 8531396 (Version 2)
Quarter: 2012Q4

REPORT INFORMATION
  Report Type: 
  Country: ES (occurrence: ES)
  Receive Date: 20120426
  Receipt Date: 20121102
  Transmission Date: 20130627
  Serious: Yes (Death, Hospitalization, Other)
  Sender: FDA-Public Use
  Company Number: ES-RANBAXY-2012RR-55872

PATIENT
  Age: 78 Year
  Sex: Male

DRUGS (3)
  1. ACICLOVIR [Suspect]
     Indication: PAIN
     Dosage: 400 mg, tid
     Route: 048
  2. ACICLOVIR [Suspect]
     Indication: RASH VESICULAR
     Dosage: 200 mg, daily
  3. ACICLOVIR [Suspect]
     Indication: RASH ERYTHEMATOUS

REACTIONS (4)
  - Aphasia [Recovering/Resolving]
  - Ataxia [Recovering/Resolving]
  - Hallucination, visual [Recovering/Resolving]
  - Accidental overdose [Recovering/Resolving]
